FAERS Safety Report 18355173 (Version 1)
Quarter: 2020Q4

REPORT INFORMATION
  Report Type: Spontaneous
  Country: FI (occurrence: FI)
  Receive Date: 20201007
  Receipt Date: 20201007
  Transmission Date: 20210114
  Serious: Yes (Other)
  Sender: FDA-Public Use
  Company Number: FI-ACCORD-204080

PATIENT
  Sex: Female

DRUGS (1)
  1. LETROZOLE. [Suspect]
     Active Substance: LETROZOLE
     Indication: PRODUCT USED FOR UNKNOWN INDICATION

REACTIONS (1)
  - Cerebral infarction [Recovered/Resolved]

NARRATIVE: CASE EVENT DATE: 2015
